FAERS Safety Report 4653015-2 (Version None)
Quarter: 2005Q2

REPORT INFORMATION
  Report Type: 
  Country: None (occurrence: None)
  Receive Date: 20050502
  Receipt Date: 20050502
  Transmission Date: 20051028
  Serious: Yes (Life-Threatening)
  Sender: FDA-Public Use
  Company Number: None

PATIENT
  Age: 6 Year
  Sex: Male
  Weight: 24 kg

DRUGS (3)
  1. ELITEK 4.4 MG (SANOFI) [Suspect]
     Indication: TUMOUR LYSIS SYNDROME
     Dosage: 4.4 MG X 1 DOSE IV
     Route: 042
     Dates: start: 20050420
  2. CYTOXAN [Concomitant]
  3. MESNA [Concomitant]

REACTIONS (1)
  - METHAEMOGLOBINAEMIA [None]
